FAERS Safety Report 4565567-1 (Version None)
Quarter: 2005Q1

REPORT INFORMATION
  Report Type: 
  Country: None (occurrence: None)
  Receive Date: 20050131
  Receipt Date: 20050119
  Transmission Date: 20050727
  Serious: Yes (Hospitalization)
  Sender: FDA-Public Use
  Company Number: JP-BRISTOL-MYERS SQUIBB COMPANY-12833067

PATIENT
  Age: 36 Year
  Sex: Male

DRUGS (11)
  1. EFAVIRENZ CAPS [Suspect]
     Indication: HIV INFECTION
     Route: 048
     Dates: start: 20030427, end: 20031224
  2. VIDEX EC [Suspect]
     Indication: HIV INFECTION
     Route: 048
     Dates: start: 20030427, end: 20031224
  3. ZIAGEN [Suspect]
     Indication: HIV INFECTION
     Route: 048
     Dates: start: 20030427, end: 20031224
  4. EPIVIR [Concomitant]
     Route: 048
     Dates: start: 19980710, end: 20030426
  5. ZERIT [Concomitant]
     Route: 048
     Dates: start: 19980711, end: 20030426
  6. VIRACEPT [Concomitant]
     Route: 048
     Dates: start: 19981204, end: 20030426
  7. EXCEGRAN [Concomitant]
     Dosage: 2 DOSAGE FORMS BID FROM 14-APR-2003 TO 16-APR-2003, 3 DOSAGE FORMS TID FROM 17-APR-2003
     Route: 048
     Dates: start: 20030414, end: 20030426
  8. PHENOBAL [Concomitant]
     Dosage: 90 MG DAILY FROM 16-APR-2003 TO 23-APR-2003, 60 MG DAILY FROM 24-APR-2003
     Route: 048
     Dates: start: 20030416, end: 20030430
  9. CALCIUM ASPARTATE [Concomitant]
     Dates: end: 20030426
  10. LOPEMIN [Concomitant]
     Dates: end: 20030426
  11. BERBERINE [Concomitant]
     Dates: end: 20030426

REACTIONS (9)
  - BLOOD URIC ACID INCREASED [None]
  - CHOLECYSTITIS ACUTE [None]
  - CHOLELITHIASIS [None]
  - CONVULSION [None]
  - GAIT DISTURBANCE [None]
  - NIGHTMARE [None]
  - PYREXIA [None]
  - RASH [None]
  - URINARY TRACT INFECTION [None]
